FAERS Safety Report 9672423 (Version 3)
Quarter: 2013Q4

REPORT INFORMATION
  Report Type: Spontaneous
  Country: IT (occurrence: IT)
  Receive Date: 20131106
  Receipt Date: 20131212
  Transmission Date: 20140711
  Serious: Yes (Hospitalization)
  Sender: FDA-Public Use
  Company Number: IT-TEVA-443060USA

PATIENT
  Age: 61 Year
  Sex: Male

DRUGS (11)
  1. LEVACT [Suspect]
     Indication: NON-HODGKIN^S LYMPHOMA
     Route: 042
     Dates: start: 20130201, end: 20130731
  2. LEVACT [Suspect]
     Indication: B-CELL LYMPHOMA
  3. MABTHERA [Suspect]
     Indication: B-CELL LYMPHOMA
     Route: 042
     Dates: start: 20130201, end: 20130731
  4. MABTHERA [Suspect]
     Indication: B-CELL LYMPHOMA
  5. CARDIOASPIRINE [Concomitant]
     Route: 048
  6. UNIPRIL [Concomitant]
     Route: 048
  7. ZYLORIC [Concomitant]
     Route: 048
  8. ESOMEPRAZOLE [Concomitant]
     Route: 048
  9. PROVISACOR [Concomitant]
     Route: 048
  10. CYMBALTA [Concomitant]
     Route: 048
  11. CONGESCOR [Concomitant]
     Route: 048

REACTIONS (1)
  - Visual impairment [Not Recovered/Not Resolved]
